FAERS Safety Report 16237475 (Version 1)
Quarter: 2019Q2

REPORT INFORMATION
  Report Type: Spontaneous
  Country: US (occurrence: US)
  Receive Date: 20190424
  Receipt Date: 20190424
  Transmission Date: 20190711
  Serious: Yes (Life-Threatening, Hospitalization, Disabling, Other)
  Sender: FDA-Public Use
  Company Number: None

PATIENT
  Age: 28 Year
  Sex: Female
  Weight: 78.66 kg

DRUGS (4)
  1. ORTHO MICRONOR [Concomitant]
     Active Substance: NORETHINDRONE
  2. XARELTO [Suspect]
     Active Substance: RIVAROXABAN
     Indication: ANTIPHOSPHOLIPID ANTIBODIES
     Dosage: ?          QUANTITY:1 TABLET(S);?
     Route: 048
     Dates: start: 20160724, end: 20190103
  3. COUMADIN [Concomitant]
     Active Substance: WARFARIN SODIUM
  4. LAMICTAL [Concomitant]
     Active Substance: LAMOTRIGINE

REACTIONS (3)
  - Blood iron decreased [None]
  - Red blood cell count decreased [None]
  - Menorrhagia [None]

NARRATIVE: CASE EVENT DATE: 20181109
